FAERS Safety Report 6039109-8 (Version None)
Quarter: 2009Q1

REPORT INFORMATION
  Report Type: 
  Country: None (occurrence: None)
  Receive Date: 20090115
  Receipt Date: 20090106
  Transmission Date: 20090719
  Serious: Yes (Other)
  Sender: FDA-Public Use
  Company Number: US-PFIZER INC-2008101235

PATIENT
  Sex: Male
  Weight: 78.005 kg

DRUGS (10)
  1. CHANTIX [Suspect]
     Indication: SMOKING CESSATION THERAPY
     Dates: start: 20081125
  2. TIMOLOL [Concomitant]
     Indication: GLAUCOMA
  3. LAXATIVES [Concomitant]
     Indication: CONSTIPATION
  4. TRAMADOL HCL [Concomitant]
  5. MORPHINE SULFATE [Concomitant]
  6. NAPROXEN [Concomitant]
  7. NEXIUM [Concomitant]
     Indication: GASTROOESOPHAGEAL REFLUX DISEASE
  8. ZESTRIL [Concomitant]
     Indication: HYPERTENSION
  9. ZOCOR [Concomitant]
     Indication: BLOOD CHOLESTEROL INCREASED
  10. LEVOXYL [Concomitant]

REACTIONS (2)
  - GASTRIC DISORDER [None]
  - HAEMATOCHEZIA [None]
